FAERS Safety Report 24820579 (Version 2)
Quarter: 2025Q1

REPORT INFORMATION
  Report Type: Spontaneous
  Country: FR (occurrence: FR)
  Receive Date: 20250108
  Receipt Date: 20250202
  Transmission Date: 20250409
  Serious: Yes (Death)
  Sender: ROCHE
  Company Number: None

PATIENT
  Age: 51 Year
  Sex: Male
  Weight: 87 kg

DRUGS (2)
  1. OBINUTUZUMAB [Suspect]
     Active Substance: OBINUTUZUMAB
     Indication: Chronic lymphocytic leukaemia
     Route: 040
     Dates: start: 20241226, end: 20241226
  2. ACETAMINOPHEN [Concomitant]
     Active Substance: ACETAMINOPHEN

REACTIONS (1)
  - Anaphylactic reaction [Fatal]

NARRATIVE: CASE EVENT DATE: 20241226
